FAERS Safety Report 5197205-1 (Version None)
Quarter: 2007Q1

REPORT INFORMATION
  Report Type: 
  Country: None (occurrence: None)
  Receive Date: 20070103
  Receipt Date: 20061220
  Transmission Date: 20070707
  Serious: Yes (Hospitalization, Disabling, Other)
  Sender: FDA-Public Use
  Company Number: NL-ELI_LILLY_AND_COMPANY-NL200612001470

PATIENT
  Age: 15 Year
  Sex: Male
  Weight: 50.9 kg

DRUGS (2)
  1. ATOMOXETINE HYDROCHLORIDE [Suspect]
     Indication: ATTENTION DEFICIT/HYPERACTIVITY DISORDER
     Dosage: 35 MG, EACH MORNING
     Route: 048
     Dates: start: 20021030
  2. ATOMOXETINE HYDROCHLORIDE [Suspect]
     Dosage: 40 MG, EACH EVENING
     Route: 048
     Dates: start: 20021030, end: 20061129

REACTIONS (5)
  - DIABETIC KETOACIDOSIS [None]
  - MALAISE [None]
  - OESOPHAGEAL CANDIDIASIS [None]
  - VOMITING [None]
  - WEIGHT DECREASED [None]
